APPROVED DRUG PRODUCT: AMMONIUM LACTATE
Active Ingredient: AMMONIUM LACTATE
Strength: EQ 12% BASE
Dosage Form/Route: CREAM;TOPICAL
Application: A076829 | Product #001
Applicant: WATSON LABORATORIES INC
Approved: Feb 7, 2006 | RLD: No | RS: No | Type: DISCN